FAERS Safety Report 6250403-8 (Version None)
Quarter: 2009Q2

REPORT INFORMATION
  Report Type: 
  Country: None (occurrence: None)
  Receive Date: 20090630
  Receipt Date: 20090626
  Transmission Date: 20091009
  Serious: Yes (Hospitalization)
  Sender: FDA-Public Use
  Company Number: FR-BRISTOL-MYERS SQUIBB COMPANY-14628986

PATIENT
  Age: 60 Year
  Sex: Female

DRUGS (8)
  1. CETUXIMAB [Suspect]
     Indication: COLORECTAL CANCER METASTATIC
     Dosage: INITIATED ON 26MAR09-(400MG/M2)CYCLIC STOP DATE - UNK
     Route: 042
     Dates: start: 20090507, end: 20090507
  2. PAZOPANIB [Suspect]
     Indication: COLORECTAL CANCER METASTATIC
     Dosage: INITIATED ON 27MAR09 STOP DATE-UNK
     Route: 048
     Dates: start: 20090507, end: 20090507
  3. IRINOTECAN HCL [Suspect]
     Indication: COLORECTAL CANCER METASTATIC
     Dosage: INITAL DOSE:26MAR09-UNK(150MG/M2) STOP DATE - UNK
     Route: 042
     Dates: start: 20090507, end: 20090507
  4. ATENOLOL [Concomitant]
  5. COTAREG [Concomitant]
  6. URAPIDIL [Concomitant]
  7. DOXYCYCLINE [Concomitant]
     Dates: start: 20090409
  8. DEXCHLORPHENIRAMINE MALEATE [Concomitant]
     Dates: start: 20090409

REACTIONS (1)
  - GASTROINTESTINAL HAEMORRHAGE [None]
